FAERS Safety Report 24272321 (Version 2)
Quarter: 2024Q4

REPORT INFORMATION
  Report Type: Report from Study
  Country: US (occurrence: US)
  Receive Date: 20240902
  Receipt Date: 20241108
  Transmission Date: 20250115
  Serious: Yes (Other)
  Sender: ABBVIE
  Company Number: US-ABBVIE-5900966

PATIENT
  Age: 63 Year
  Sex: Female
  Weight: 82 kg

DRUGS (24)
  1. HUMIRA [Suspect]
     Active Substance: ADALIMUMAB
     Indication: Psoriasis
     Dosage: CITRATE FREE
     Route: 058
     Dates: start: 20070101
  2. HUMIRA [Suspect]
     Active Substance: ADALIMUMAB
  3. BENADRYL [Concomitant]
     Active Substance: DIPHENHYDRAMINE HYDROCHLORIDE
     Indication: Product used for unknown indication
     Dosage: TAKE 1 CAP BY MOUTH EVERY 6 HOURS AS NEEDED.
     Route: 048
  4. LIDEX [Concomitant]
     Active Substance: FLUOCINONIDE
     Indication: Product used for unknown indication
     Dosage: 0.05% CREA?USE 1 APPLICATION TO AFFECTED AREA TWICE DAILY.
  5. NORCO [Concomitant]
     Active Substance: ACETAMINOPHEN\HYDROCODONE BITARTRATE
     Indication: Product used for unknown indication
     Dosage: TAKE 1 TAB BY MOUTH EVERY 6 HOURS AS NEEDED.?5-325 MG TABS
     Route: 048
  6. NOVOLOG [Concomitant]
     Active Substance: INSULIN ASPART
     Indication: Product used for unknown indication
     Dosage: TIME INTERVAL: 0.33333333 DAYS: 100 UNIT/ML SOLN?INJECT 7 UNITS BENEATH THE SKIN 3 (THREE) TIMES ...
  7. SYNTHROID [Concomitant]
     Active Substance: LEVOTHYROXINE SODIUM
     Indication: Product used for unknown indication
     Dosage: 75 MCG TABS?TAKE 1 TAB BY MOUTH ONCE A DAY.
     Route: 048
  8. MAGNESIUM OXIDE [Concomitant]
     Active Substance: MAGNESIUM OXIDE
     Indication: Product used for unknown indication
     Dosage: 400 MG (241.3 MG MAGNESIUM) TABS?TAKE 1 TAB BY MOUTH ONCE A DAY.
     Route: 048
  9. TOPROL XL [Concomitant]
     Active Substance: METOPROLOL SUCCINATE
     Indication: Product used for unknown indication
     Dosage: TB24?TAKE 1 TABLET BY MOUTH ONCE DAILY
     Route: 048
  10. ACCURE [Concomitant]
     Indication: Blood glucose
     Dosage: USE 1 STRIP TO CHECK BLOOD SUGAR FOUR TIMES DAILY
  11. ASPIRIN [Concomitant]
     Active Substance: ASPIRIN
     Indication: Product used for unknown indication
     Dosage: TAKE 1 TAB BY MOUTH ONCE A DAY.?TABLET DELAYED RELEASE
     Route: 048
  12. LIPITOR [Concomitant]
     Active Substance: ATORVASTATIN CALCIUM
     Indication: Product used for unknown indication
     Dosage: TAKE 1 TABLET BY MOUTH ONCE DAILY AT BEDTIME
     Route: 048
  13. INSULIN NOS [Concomitant]
     Active Substance: INSULIN NOS
     Indication: Product used for unknown indication
     Dosage: 0.3 MG, 31 GAUGE X 15/64^ SYRG?USE FOUR TIMES DAILY
  14. VITAMIN D3 [Concomitant]
     Active Substance: CHOLECALCIFEROL
     Indication: Product used for unknown indication
     Dosage: (1,000 UNIT) TABS?TAKE 1 TAB BY MOUTH ONCE A DAY
     Route: 048
  15. VITAMIN B12 [Concomitant]
     Active Substance: CYANOCOBALAMIN
     Indication: Product used for unknown indication
     Dosage: TAKE 1 TAB BY MOUTH ONCE A DAY.
     Route: 048
  16. ALDACTONE [Concomitant]
     Active Substance: SPIRONOLACTONE
     Indication: Product used for unknown indication
     Dosage: TAKE 0.5 TABS BY MOUTH ONCE A DAY.
     Route: 048
  17. INSULIN DEGLUDEC [Concomitant]
     Active Substance: INSULIN DEGLUDEC
     Indication: Product used for unknown indication
     Dosage: 100 UNIT/ML (3 ML) INSULI PEN ?INJECT 3.1),.18 UNITS SUBCUTANEOUSLY AT BEDTIME
     Route: 058
  18. DIOVAN [Concomitant]
     Active Substance: VALSARTAN
     Indication: Product used for unknown indication
     Dosage: TAKE 1 TAB BY MOUTH ONCE A DAY.?ACCORDING TO OUR RECORDS, YOU MAY HAVE BEEN TAKING?THIS MEDICATIO...
     Route: 048
  19. Vita lutein complex [Concomitant]
     Indication: Product used for unknown indication
     Dosage: 300 MCG-200 MG-27MG-2 MG TABS ?TAKE 1 TAB BY MOUTH.
     Route: 048
  20. Aquasol e [Concomitant]
     Indication: Product used for unknown indication
     Dosage: TAKE 1 CAP BY MOUTH ONCE A DAY. ?400 UNITS
     Route: 048
  21. NANO [Concomitant]
     Indication: Product used for unknown indication
     Dosage: 32 GAUGE X 5/32^ NDLE?USE TO INJECT INSULIN AT BEDTIME
  22. NITROSTAT [Concomitant]
     Active Substance: NITROGLYCERIN
     Indication: Product used for unknown indication
     Dosage: 0.4 MG SUBL?DISSOLVE ONE TABLET UNDER THE TONGUE EVERY 5?MINUTES AS NEEDED FOR CHEST PAIN. DO NOT...
  23. SEMAGLUTIDE [Concomitant]
     Active Substance: SEMAGLUTIDE
     Indication: Product used for unknown indication
     Dosage: 0.25 MG OR 0.5 MG(2 MG/1.5 ML) PEN INJECTOR?INJECT BENEATH THE SKIN EVERY 7 DAYS.
  24. DEXLANSOPRAZOLE [Concomitant]
     Active Substance: DEXLANSOPRAZOLE
     Indication: Product used for unknown indication
     Dosage: 60 MG  CPDM?TAKE 1 CAP BY MOUTH ONCE A DAY.
     Route: 048

REACTIONS (6)
  - Coronary artery occlusion [Unknown]
  - Cholecystectomy [Unknown]
  - Psoriasis [Unknown]
  - Lice infestation [Unknown]
  - Macular degeneration [Unknown]
  - Diabetic eye disease [Unknown]

NARRATIVE: CASE EVENT DATE: 20160101
